FAERS Safety Report 9771795 (Version 2)
Quarter: 2014Q1

REPORT INFORMATION
  Report Type: Spontaneous
  Country: VE (occurrence: VE)
  Receive Date: 20131219
  Receipt Date: 20140219
  Transmission Date: 20141002
  Serious: Yes (Other)
  Sender: FDA-Public Use
  Company Number: VE-AMGEN-VENSP2013089179

PATIENT
  Age: 49 Year
  Sex: Female

DRUGS (5)
  1. ENBREL [Suspect]
     Indication: RHEUMATOID ARTHRITIS
     Dosage: 25 MG, UNK
     Route: 058
     Dates: start: 2012, end: 2012
  2. ANTUX [Concomitant]
     Indication: ASTHMA
     Dosage: UNK
  3. COZAAR [Concomitant]
     Indication: HYPERTENSION
     Dosage: 50 MG, 1X/DAY
     Route: 048
  4. MANIDON [Concomitant]
     Indication: HYPERTENSION
     Dosage: 250 MG, 1X/DAY
     Route: 048
  5. NATRILIX                           /00340101/ [Concomitant]
     Indication: HYPERTENSION
     Dosage: 1.5 MG, 1X/DAY
     Route: 048

REACTIONS (2)
  - Haemorrhoids [Recovered/Resolved]
  - Subcutaneous abscess [Recovered/Resolved]
